FAERS Safety Report 24161886 (Version 1)
Quarter: 2024Q3

REPORT INFORMATION
  Report Type: Spontaneous
  Country: US (occurrence: US)
  Receive Date: 20240801
  Receipt Date: 20240801
  Transmission Date: 20241017
  Serious: Yes (Hospitalization, Other)
  Sender: CIPLA
  Company Number: US-CIPLA LTD.-2024US08080

PATIENT

DRUGS (1)
  1. NAPROXEN [Suspect]
     Active Substance: NAPROXEN
     Indication: Product used for unknown indication
     Dosage: 12 DOSAGE FORM, DAILY FOR A WEEK AND A HALF
     Route: 065

REACTIONS (2)
  - Haemorrhagic cholecystitis [Recovering/Resolving]
  - Gastroduodenal ulcer [Recovering/Resolving]
